FAERS Safety Report 24024437 (Version 1)
Quarter: 2024Q2

REPORT INFORMATION
  Report Type: Report from Study
  Country: RO (occurrence: RO)
  Receive Date: 20240628
  Receipt Date: 20240628
  Transmission Date: 20240716
  Serious: No
  Sender: FDA-Public Use
  Company Number: RO-ROCHE-3505579

PATIENT
  Age: 44 Year
  Sex: Female
  Weight: 65.0 kg

DRUGS (6)
  1. PHESGO [Suspect]
     Active Substance: HYALURONIDASE-ZZXF\PERTUZUMAB\TRASTUZUMAB
     Indication: Breast cancer in situ
     Dosage: LOADING DOSE OF 1200/600
     Route: 058
     Dates: start: 20231027
  2. PHESGO [Suspect]
     Active Substance: HYALURONIDASE-ZZXF\PERTUZUMAB\TRASTUZUMAB
     Indication: Intraductal proliferative breast lesion
  3. CARBOPLATIN [Suspect]
     Active Substance: CARBOPLATIN
     Indication: Intraductal proliferative breast lesion
     Route: 058
     Dates: start: 20231027
  4. CARBOPLATIN [Suspect]
     Active Substance: CARBOPLATIN
     Indication: Breast cancer in situ
  5. DOCETAXEL [Suspect]
     Active Substance: DOCETAXEL\DOCETAXEL ANHYDROUS
     Indication: Intraductal proliferative breast lesion
     Route: 058
     Dates: start: 20231027
  6. DOCETAXEL [Suspect]
     Active Substance: DOCETAXEL\DOCETAXEL ANHYDROUS
     Indication: Breast cancer in situ

REACTIONS (2)
  - Vasculitis [Unknown]
  - Hypersensitivity [Unknown]
